FAERS Safety Report 8594538-3 (Version None)
Quarter: 2012Q3

REPORT INFORMATION
  Report Type: 
  Country: None (occurrence: None)
  Receive Date: 20120815
  Receipt Date: 20120808
  Transmission Date: 20120928
  Serious: Yes (Other)
  Sender: FDA-Public Use
  Company Number: BR-US-EMD SERONO, INC.-7153380

PATIENT
  Sex: Female

DRUGS (1)
  1. REBIF [Suspect]
     Route: 065

REACTIONS (4)
  - BRONCHIOLITIS [None]
  - NORMAL NEWBORN [None]
  - EXPOSURE VIA FATHER [None]
  - PREMATURE BABY [None]
